FAERS Safety Report 6762108-5 (Version None)
Quarter: 2010Q2

REPORT INFORMATION
  Report Type: 
  Country: None (occurrence: None)
  Receive Date: 20100503
  Receipt Date: 20090715
  Transmission Date: 20101027
  Serious: No
  Sender: FDA-Public Use
  Company Number: OMX-2010-00028

PATIENT

DRUGS (1)
  1. EVICEL [Suspect]
     Indication: KNEE ARTHROPLASTY
     Dosage: ??

REACTIONS (1)
  - DEEP VEIN THROMBOSIS [None]
